FAERS Safety Report 6006182-2 (Version None)
Quarter: 2008Q4

REPORT INFORMATION
  Report Type: 
  Country: None (occurrence: None)
  Receive Date: 20081216
  Receipt Date: 20081216
  Transmission Date: 20090506
  Serious: Yes (Life-Threatening)
  Sender: FDA-Public Use
  Company Number: None

PATIENT
  Age: 49 Year
  Sex: Female
  Weight: 89 kg

DRUGS (2)
  1. BEVACIZUMAB 400MG GENENTECH [Suspect]
     Indication: NON-SMALL CELL LUNG CANCER
     Dosage: 1200MG ONE TIME IV DRIP
     Route: 041
     Dates: start: 20081129, end: 20081129
  2. METHYLNALTREXONE 12MG WYETH [Suspect]
     Indication: CONSTIPATION
     Dosage: 12MG Q48H SQ
     Route: 058
     Dates: start: 20081206, end: 20081208

REACTIONS (1)
  - INTESTINAL PERFORATION [None]
